FAERS Safety Report 14467994 (Version 4)
Quarter: 2022Q3

REPORT INFORMATION
  Report Type: Spontaneous
  Country: US (occurrence: US)
  Receive Date: 20180131
  Receipt Date: 20220729
  Transmission Date: 20221027
  Serious: No
  Sender: FDA-Public Use
  Company Number: US-PFIZER INC-2018038992

PATIENT
  Age: 55 Year
  Sex: Female
  Weight: 72.562 kg

DRUGS (2)
  1. FLUCONAZOLE [Suspect]
     Active Substance: FLUCONAZOLE
     Indication: Fungal infection
     Dosage: 100 MG, 1X/DAY
     Route: 048
     Dates: start: 201801
  2. CHLOROMYCETIN [Concomitant]
     Active Substance: CHLORAMPHENICOL
     Dosage: UNK, DAILY

REACTIONS (8)
  - Drug ineffective [Unknown]
  - Dyspepsia [Recovered/Resolved]
  - Abdominal discomfort [Recovered/Resolved]
  - Abdominal pain [Unknown]
  - Headache [Unknown]
  - Dyspnoea [Unknown]
  - Functional gastrointestinal disorder [Unknown]
  - Off label use [Unknown]

NARRATIVE: CASE EVENT DATE: 20180101
